FAERS Safety Report 11140021 (Version 1)
Quarter: 2015Q2

REPORT INFORMATION
  Report Type: Spontaneous
  Country: US (occurrence: US)
  Receive Date: 20150527
  Receipt Date: 20150527
  Transmission Date: 20150821
  Serious: No
  Sender: FDA-Public Use
  Company Number: US-ENDO PHARMACEUTICALS INC.-2015-000038

PATIENT
  Sex: Female
  Weight: 59.02 kg

DRUGS (1)
  1. SUPPRELIN LA [Suspect]
     Active Substance: HISTRELIN ACETATE
     Indication: PRECOCIOUS PUBERTY
     Route: 065
     Dates: start: 201407

REACTIONS (6)
  - Personality change [Unknown]
  - Breast enlargement [Unknown]
  - Drug ineffective [Unknown]
  - Weight increased [Unknown]
  - Lethargy [Unknown]
  - Mood swings [Unknown]

NARRATIVE: CASE EVENT DATE: 2014
